FAERS Safety Report 20919384 (Version 1)
Quarter: 2022Q2

REPORT INFORMATION
  Report Type: Spontaneous
  Country: IT (occurrence: IT)
  Receive Date: 20220606
  Receipt Date: 20220606
  Transmission Date: 20220720
  Serious: Yes (Other)
  Sender: FDA-Public Use
  Company Number: IT-MYLANLABS-2022M1042128

PATIENT
  Age: 16 Year
  Sex: Female

DRUGS (6)
  1. LANSOPRAZOLE [Suspect]
     Active Substance: LANSOPRAZOLE
     Indication: Gastritis erosive
     Dosage: 30 MILLIGRAM, AM
     Route: 048
  2. LANSOPRAZOLE [Suspect]
     Active Substance: LANSOPRAZOLE
     Dosage: 15 MILLIGRAM, PM
     Route: 048
  3. LITHIUM [Concomitant]
     Active Substance: LITHIUM
     Indication: Bipolar disorder
     Dosage: 300 MILLIGRAM, ~THREE TIMES A DAY
  4. LITHIUM [Concomitant]
     Active Substance: LITHIUM
     Indication: Catatonia
  5. PERICIAZINE [Concomitant]
     Active Substance: PERICIAZINE
     Indication: Sleep disorder
     Dosage: 10 MILLIGRAM, HS
  6. PERICIAZINE [Concomitant]
     Active Substance: PERICIAZINE
     Indication: Euphoric mood

REACTIONS (2)
  - Major depression [Recovering/Resolving]
  - Catatonia [Recovering/Resolving]
